FAERS Safety Report 7503720-5 (Version None)
Quarter: 2011Q2

REPORT INFORMATION
  Report Type: 
  Country: None (occurrence: None)
  Receive Date: 20110524
  Receipt Date: 20110524
  Transmission Date: 20111010
  Serious: Yes (Life-Threatening)
  Sender: FDA-Public Use
  Company Number: None

PATIENT
  Age: 36 Year
  Sex: Female
  Weight: 75.2971 kg

DRUGS (2)
  1. CYTOMEL [Suspect]
     Dosage: 5MCG DAILY
     Dates: start: 20110519, end: 20110523
  2. SYNTHROID [Suspect]
     Indication: HYPOTHYROIDISM
     Dosage: .05 MG DAILY
     Dates: start: 20110519, end: 20110523

REACTIONS (3)
  - RENAL PAIN [None]
  - INSOMNIA [None]
  - CHEST PAIN [None]
